FAERS Safety Report 5228633-3 (Version None)
Quarter: 2007Q1

REPORT INFORMATION
  Report Type: 
  Country: None (occurrence: None)
  Receive Date: 20070131
  Receipt Date: 20070123
  Transmission Date: 20070707
  Serious: Yes (Other)
  Sender: FDA-Public Use
  Company Number: GXKR2006DE02030

PATIENT
  Sex: Female

DRUGS (1)
  1. CEFUROXIME [Suspect]
     Dosage: 250 MG, TID, ORAL, SEE IMAGE
     Route: 048
     Dates: start: 20060401, end: 20060401

REACTIONS (3)
  - ABORTION INDUCED [None]
  - DRUG EXPOSURE DURING PREGNANCY [None]
  - ECTOPIC PREGNANCY [None]
